FAERS Safety Report 8164484-8 (Version None)
Quarter: 2012Q1

REPORT INFORMATION
  Report Type: 
  Country: None (occurrence: None)
  Receive Date: 20120224
  Receipt Date: 20120220
  Transmission Date: 20120608
  Serious: Yes (Death, Hospitalization, Other)
  Sender: FDA-Public Use
  Company Number: DE-ASTRAZENECA-2011SE66632

PATIENT
  Age: 72 Year
  Sex: Male

DRUGS (11)
  1. RAMIPRIL [Concomitant]
     Route: 048
  2. MELPERON [Concomitant]
     Route: 048
  3. CLARITHROMYCIN [Concomitant]
     Route: 048
  4. HEPARIN [Concomitant]
  5. ROCEPHIN [Concomitant]
     Route: 048
  6. SEROQUEL [Suspect]
     Indication: DEMENTIA
     Route: 048
     Dates: start: 20100308, end: 20100403
  7. DONECEPIL [Concomitant]
     Route: 048
  8. ASPIRIN [Concomitant]
     Route: 048
  9. BIFITERAL [Concomitant]
     Route: 048
  10. RISPERDAL [Concomitant]
     Route: 048
  11. EUNERPAN [Concomitant]
     Route: 048

REACTIONS (8)
  - CEREBROVASCULAR ACCIDENT [None]
  - FALL [None]
  - INTRAVENTRICULAR HAEMORRHAGE [None]
  - MENTAL DISORDER [None]
  - OFF LABEL USE [None]
  - SOMNOLENCE [None]
  - DIARRHOEA [None]
  - AGITATION [None]
